FAERS Safety Report 12333185 (Version 2)
Quarter: 2016Q4

REPORT INFORMATION
  Report Type: Spontaneous
  Country: US (occurrence: US)
  Receive Date: 20160504
  Receipt Date: 20161013
  Transmission Date: 20170207
  Serious: No
  Sender: FDA-Public Use
  Company Number: US-ROCHE-1646236

PATIENT
  Age: 69 Year
  Sex: Female

DRUGS (2)
  1. ESBRIET [Suspect]
     Active Substance: PIRFENIDONE
     Indication: IDIOPATHIC PULMONARY FIBROSIS
     Route: 048
     Dates: start: 20150615
  2. ESBRIET [Suspect]
     Active Substance: PIRFENIDONE
     Route: 048
     Dates: start: 20150420

REACTIONS (3)
  - Joint stiffness [Not Recovered/Not Resolved]
  - Abdominal discomfort [Unknown]
  - Dyspepsia [Unknown]

NARRATIVE: CASE EVENT DATE: 20151013
